FAERS Safety Report 17024104 (Version 1)
Quarter: 2019Q4

REPORT INFORMATION
  Report Type: Spontaneous
  Country: FR (occurrence: FR)
  Receive Date: 20191113
  Receipt Date: 20191113
  Transmission Date: 20200122
  Serious: Yes (Hospitalization, Other)
  Sender: FDA-Public Use
  Company Number: FR-AUROBINDO-AUR-APL-2019-072033

PATIENT
  Age: 60 Year
  Sex: Male
  Weight: 98 kg

DRUGS (1)
  1. AMOXICILLIN. [Suspect]
     Active Substance: AMOXICILLIN
     Indication: NASOPHARYNGITIS
     Dosage: 1 GRAM 1 TOTAL
     Route: 048
     Dates: start: 20191004, end: 20191004

REACTIONS (6)
  - Anaphylactic shock [Recovered/Resolved]
  - Nausea [Recovered/Resolved]
  - Lip oedema [Recovered/Resolved]
  - Pruritus [Recovered/Resolved]
  - Tongue oedema [Recovered/Resolved]
  - Dizziness [Recovered/Resolved]

NARRATIVE: CASE EVENT DATE: 20191004
